FAERS Safety Report 9290559 (Version 1)
Quarter: 2013Q2

REPORT INFORMATION
  Report Type: Spontaneous
  Country: US (occurrence: US)
  Receive Date: 20130514
  Receipt Date: 20130514
  Transmission Date: 20140414
  Serious: Yes (Other)
  Sender: FDA-Public Use
  Company Number: US-RB-053426-13

PATIENT
  Age: 32 Year
  Sex: Female

DRUGS (1)
  1. SUBOXONE FILM [Suspect]
     Indication: DRUG DEPENDENCE
     Dosage: SUBOXONE FILM; VARIOUS DOSES AT VARIOUS TIMES THROUGHOUT THE DAY UP TO 16 MG DAILY
     Route: 060
     Dates: start: 201205

REACTIONS (7)
  - Nausea [Recovered/Resolved]
  - Wrong technique in drug usage process [Not Recovered/Not Resolved]
  - Underdose [Not Recovered/Not Resolved]
  - Haematuria [Not Recovered/Not Resolved]
  - Back pain [Not Recovered/Not Resolved]
  - Dysuria [Not Recovered/Not Resolved]
  - Bladder disorder [Not Recovered/Not Resolved]
